FAERS Safety Report 25512434 (Version 2)
Quarter: 2025Q3

REPORT INFORMATION
  Report Type: Spontaneous
  Country: US (occurrence: US)
  Receive Date: 20250703
  Receipt Date: 20250728
  Transmission Date: 20251020
  Serious: No
  Sender: ABBVIE
  Company Number: US-ABBVIE-6349411

PATIENT
  Sex: Female

DRUGS (1)
  1. VRAYLAR [Suspect]
     Active Substance: CARIPRAZINE
     Indication: Major depression
     Route: 048
     Dates: start: 2024

REACTIONS (2)
  - Loss of personal independence in daily activities [Unknown]
  - Fall [Unknown]
